FAERS Safety Report 9310713 (Version 2)
Quarter: 2013Q2

REPORT INFORMATION
  Report Type: Report from Study
  Country: CA (occurrence: CA)
  Receive Date: 20130527
  Receipt Date: 20130621
  Transmission Date: 20140414
  Serious: Yes (Hospitalization)
  Sender: FDA-Public Use
  Company Number: CA-UCBSA-086332

PATIENT
  Age: 56 Year
  Sex: Female
  Weight: 52.2 kg

DRUGS (5)
  1. CIMZIA [Suspect]
     Indication: RHEUMATOID ARTHRITIS
     Dosage: X1, TOOK ONLY IST LOADING DOSE
     Route: 058
     Dates: start: 20111201, end: 20111201
  2. CIMZIA [Suspect]
     Indication: RHEUMATOID ARTHRITIS
     Route: 058
     Dates: start: 20111215, end: 20121204
  3. CIMZIA [Suspect]
     Indication: RHEUMATOID ARTHRITIS
     Route: 058
     Dates: start: 20130110, end: 20130610
  4. PLAQUENIL [Concomitant]
     Indication: RHEUMATOID ARTHRITIS
     Route: 048
     Dates: start: 20080618
  5. ADVAIR [Concomitant]
     Indication: ASTHMA
     Route: 055

REACTIONS (1)
  - Crohn^s disease [Not Recovered/Not Resolved]
